FAERS Safety Report 8850889 (Version 1)
Quarter: 2012Q4

REPORT INFORMATION
  Report Type: 
  Country: US (occurrence: US)
  Receive Date: 20121019
  Receipt Date: 20121019
  Transmission Date: 20130627
  Serious: No
  Sender: FDA-Public Use
  Company Number: US-PFIZER INC-2012260819

PATIENT
  Age: 37 Year
  Sex: Male
  Weight: 162 kg

DRUGS (16)
  1. CHANTIX [Suspect]
     Indication: SMOKING CESSATION THERAPY
     Dosage: UNK
     Dates: start: 201002, end: 2010
  2. CHANTIX [Suspect]
     Dosage: 0.5 mg, 1x/day
     Dates: start: 201009
  3. CHANTIX [Suspect]
     Dosage: UNK
  4. LISINOPRIL [Concomitant]
     Indication: HYPERTENSION
     Dosage: 40 mg, 1x/day
  5. BYETTA [Concomitant]
     Indication: TYPE 2 DIABETES MELLITUS
     Dosage: UNK
  6. AMARYL [Concomitant]
     Indication: TYPE 2 DIABETES MELLITUS
     Dosage: UNK
  7. MAXZIDE [Concomitant]
     Dosage: [Triamterene 75 mg]/[hydrochlorothiazide 50 mg], daily
  8. LEVEMIR [Concomitant]
     Dosage: 58 IU, 2x/day
  9. CYMBALTA [Concomitant]
     Dosage: 90 mg, daily
  10. NOVOLOG [Concomitant]
     Dosage: 25 units, after each meal
  11. TESTOSTERONE [Concomitant]
     Dosage: 200 mg, daily
  12. TRICOR [Concomitant]
     Indication: BLOOD CHOLESTEROL INCREASED
     Dosage: 145 mg, daily
  13. SIMVASTATIN [Concomitant]
     Dosage: 80 mg, daily
  14. METOCLOPRAMIDE [Concomitant]
     Dosage: 10 mg, 4x/day
  15. PROZAC [Concomitant]
     Dosage: 20 mg, daily
  16. ROZEREM [Concomitant]
     Indication: SLEEP DISORDER
     Dosage: UNK

REACTIONS (1)
  - Drug ineffective [Unknown]
